FAERS Safety Report 7630975-9 (Version None)
Quarter: 2011Q3

REPORT INFORMATION
  Report Type: 
  Country: None (occurrence: None)
  Receive Date: 20110725
  Receipt Date: 20110714
  Transmission Date: 20111222
  Serious: Yes (Hospitalization)
  Sender: FDA-Public Use
  Company Number: US-BIOGENIDEC-2011BI020535

PATIENT
  Age: 60 Year
  Sex: Female

DRUGS (1)
  1. AVONEX [Suspect]
     Indication: MULTIPLE SCLEROSIS
     Route: 030
     Dates: start: 20000103

REACTIONS (5)
  - GAIT DISTURBANCE [None]
  - GENERAL SYMPTOM [None]
  - COGNITIVE DISORDER [None]
  - MENTAL DISORDER [None]
  - SECONDARY PROGRESSIVE MULTIPLE SCLEROSIS [None]
